FAERS Safety Report 16389632 (Version 2)
Quarter: 2019Q3

REPORT INFORMATION
  Report Type: Report from Study
  Country: None (occurrence: US)
  Receive Date: 20190604
  Receipt Date: 20190704
  Transmission Date: 20191004
  Serious: Yes (Hospitalization, Other)
  Sender: FDA-Public Use
  Company Number: US-ABBVIE-19K-163-2749325-00

PATIENT
  Age: 58 Year
  Sex: Female
  Weight: 57.2 kg

DRUGS (2)
  1. HUMIRA [Suspect]
     Active Substance: ADALIMUMAB
     Route: 058
  2. HUMIRA [Suspect]
     Active Substance: ADALIMUMAB
     Indication: CROHN^S DISEASE
     Route: 058
     Dates: start: 2006

REACTIONS (37)
  - Acne [Recovering/Resolving]
  - Emphysema [Recovered/Resolved]
  - Malaise [Unknown]
  - Sputum discoloured [Not Recovered/Not Resolved]
  - Dermatitis [Recovering/Resolving]
  - Immunodeficiency [Unknown]
  - Crohn^s disease [Recovered/Resolved]
  - Epistaxis [Recovering/Resolving]
  - Skin ulcer [Recovering/Resolving]
  - Secretion discharge [Unknown]
  - Ear disorder [Unknown]
  - Asthenia [Unknown]
  - Iron deficiency [Unknown]
  - Retching [Not Recovered/Not Resolved]
  - Skin infection [Recovered/Resolved]
  - Dyspnoea [Unknown]
  - Alopecia [Recovering/Resolving]
  - Pruritus [Unknown]
  - Inflammation [Recovering/Resolving]
  - Seborrhoeic dermatitis [Unknown]
  - Injection site pain [Recovered/Resolved]
  - Scab [Recovering/Resolving]
  - Hypoacusis [Unknown]
  - Chronic obstructive pulmonary disease [Recovered/Resolved]
  - Inner ear inflammation [Recovering/Resolving]
  - Skin disorder [Unknown]
  - Anxiety [Unknown]
  - Pneumonia [Recovered/Resolved]
  - Staphylococcal skin infection [Recovering/Resolving]
  - Anaemia [Recovering/Resolving]
  - Viral infection [Unknown]
  - Urinary tract infection [Recovering/Resolving]
  - Pneumothorax [Unknown]
  - Hypersomnia [Unknown]
  - Sinus disorder [Recovering/Resolving]
  - Ulcer [Not Recovered/Not Resolved]
  - Ulcer [Recovered/Resolved]

NARRATIVE: CASE EVENT DATE: 2006
